FAERS Safety Report 10589005 (Version 1)
Quarter: 2014Q4

REPORT INFORMATION
  Report Type: Spontaneous
  Country: DE (occurrence: DE)
  Receive Date: 20141117
  Receipt Date: 20141117
  Transmission Date: 20150529
  Serious: Yes (Death, Other)
  Sender: FDA-Public Use
  Company Number: PHHY2014DE147708

PATIENT
  Age: 59 Year
  Sex: Female

DRUGS (1)
  1. ALENDRONIC ACID [Suspect]
     Active Substance: ALENDRONIC ACID
     Indication: OSTEOPOROSIS
     Route: 048

REACTIONS (6)
  - Embolism venous [Unknown]
  - Osteonecrosis of jaw [Unknown]
  - Death [Fatal]
  - Bacterial sepsis [Unknown]
  - Multi-organ failure [Unknown]
  - Abscess jaw [Unknown]
